FAERS Safety Report 10375157 (Version 3)
Quarter: 2014Q4

REPORT INFORMATION
  Report Type: Spontaneous
  Country: US (occurrence: US)
  Receive Date: 20140811
  Receipt Date: 20141104
  Transmission Date: 20150528
  Serious: Yes (Death, Hospitalization, Other)
  Sender: FDA-Public Use
  Company Number: US-B.I. PHARMACEUTICALS,INC./RIDGEFIELD-2014-BI-35463BP

PATIENT
  Age: 69 Year
  Sex: Female

DRUGS (1)
  1. PRADAXA [Suspect]
     Active Substance: DABIGATRAN ETEXILATE MESYLATE
     Indication: ATRIAL FIBRILLATION
     Dosage: 300 MG
     Route: 048
     Dates: start: 20140108

REACTIONS (17)
  - Pleural effusion [Unknown]
  - Contusion [Unknown]
  - Multi-organ failure [Fatal]
  - Ischaemic cardiomyopathy [Fatal]
  - Hepatic function abnormal [Unknown]
  - Right ventricular failure [Fatal]
  - Cardiogenic shock [Fatal]
  - Cardiorenal syndrome [Unknown]
  - Gastrointestinal haemorrhage [Recovered/Resolved]
  - Suicidal ideation [Unknown]
  - Respiratory failure [Unknown]
  - Pleural effusion [Unknown]
  - Coagulopathy [Unknown]
  - Mental status changes [Unknown]
  - Depression [Unknown]
  - Renal failure [Unknown]
  - Cardiac arrest [Fatal]

NARRATIVE: CASE EVENT DATE: 201403
